FAERS Safety Report 7392976-8 (Version None)
Quarter: 2011Q2

REPORT INFORMATION
  Report Type: 
  Country: None (occurrence: None)
  Receive Date: 20110404
  Receipt Date: 20110328
  Transmission Date: 20111010
  Serious: Yes (Other)
  Sender: FDA-Public Use
  Company Number: JP-PFIZER INC-2011033804

PATIENT
  Age: 76 Year
  Sex: Male

DRUGS (8)
  1. WARFARIN [Interacting]
     Indication: ATRIAL FIBRILLATION
  2. AZELNIDIPINE/OLMESARTAN MEDOXOMIL [Concomitant]
     Indication: ATRIAL FIBRILLATION
  3. WARFARIN [Interacting]
     Indication: CEREBRAL INFARCTION
     Dosage: 3.5 MG, 1X/DAY
     Route: 048
  4. NICERGOLINE [Concomitant]
     Indication: ATRIAL FIBRILLATION
  5. LYRICA [Suspect]
     Indication: NEUROPATHY PERIPHERAL
     Dosage: 75 MG, 2X/DAY
     Route: 048
     Dates: start: 20110120, end: 20110127
  6. NICERGOLINE [Concomitant]
     Indication: CEREBRAL INFARCTION
     Dosage: 5 MG, 3X/DAY
     Route: 048
  7. AZELNIDIPINE/OLMESARTAN MEDOXOMIL [Concomitant]
     Indication: HYPERTENSION
     Dosage: UNK
     Route: 048
     Dates: end: 20101211
  8. LANIRAPID [Concomitant]
     Indication: CARDIAC FAILURE
     Dosage: 0.1 MG, 1X/DAY
     Route: 048

REACTIONS (2)
  - DRUG INTERACTION [None]
  - INTERNATIONAL NORMALISED RATIO DECREASED [None]
